FAERS Safety Report 9296314 (Version 1)
Quarter: 2013Q2

REPORT INFORMATION
  Report Type: Report from Study
  Country: CA (occurrence: CA)
  Receive Date: 20130517
  Receipt Date: 20130517
  Transmission Date: 20140414
  Serious: Yes (Hospitalization)
  Sender: FDA-Public Use
  Company Number: CA-ABBOTT-13P-028-1090129-00

PATIENT
  Sex: Male
  Weight: 74.46 kg

DRUGS (1)
  1. LUPRON DEPOT [Suspect]
     Indication: PROSTATE CANCER
     Dosage: LATEST DOSE: 16-JAN-2013
     Route: 030
     Dates: start: 20110105

REACTIONS (2)
  - General physical health deterioration [Unknown]
  - Dementia Alzheimer^s type [Unknown]
